FAERS Safety Report 25289204 (Version 2)
Quarter: 2025Q2

REPORT INFORMATION
  Report Type: Spontaneous
  Country: US (occurrence: US)
  Receive Date: 20250509
  Receipt Date: 20250516
  Transmission Date: 20250716
  Serious: No
  Sender: ALNYLAM PHARMACEUTICALS
  Company Number: US-ALNYLAM PHARMACEUTICALS, INC.-ALN-2025-003042

PATIENT

DRUGS (3)
  1. GIVLAARI [Suspect]
     Active Substance: GIVOSIRAN SODIUM
     Indication: Product used for unknown indication
     Route: 065
     Dates: start: 202502, end: 202502
  2. GIVLAARI [Suspect]
     Active Substance: GIVOSIRAN SODIUM
     Route: 065
     Dates: start: 20250330, end: 20250330
  3. GIVLAARI [Suspect]
     Active Substance: GIVOSIRAN SODIUM
     Route: 065
     Dates: start: 20250427, end: 20250427

REACTIONS (32)
  - Porphyria acute [Unknown]
  - Tunnel vision [Unknown]
  - Pyrexia [Unknown]
  - Pollakiuria [Unknown]
  - Abdominal pain [Unknown]
  - Migraine [Unknown]
  - Photosensitivity reaction [Recovering/Resolving]
  - Neuralgia [Unknown]
  - Back pain [Unknown]
  - Malaise [Unknown]
  - Ill-defined disorder [Unknown]
  - Dysmenorrhoea [Recovering/Resolving]
  - Dizziness [Recovering/Resolving]
  - Vaginal discharge [Unknown]
  - Alopecia [Unknown]
  - Brain fog [Unknown]
  - Heart rate abnormal [Not Recovered/Not Resolved]
  - Hypersomnia [Unknown]
  - Stress [Unknown]
  - Pain [Unknown]
  - Pain of skin [Unknown]
  - Weight increased [Unknown]
  - Chest discomfort [Not Recovered/Not Resolved]
  - Dyspnoea [Not Recovered/Not Resolved]
  - Vision blurred [Unknown]
  - Dysarthria [Unknown]
  - Urinary tract infection [Unknown]
  - Renal disorder [Unknown]
  - Heart rate increased [Recovering/Resolving]
  - Nausea [Unknown]
  - Blood homocysteine increased [Unknown]
  - Fatigue [Not Recovered/Not Resolved]

NARRATIVE: CASE EVENT DATE: 20250301
